FAERS Safety Report 21006942 (Version 2)
Quarter: 2022Q3

REPORT INFORMATION
  Report Type: Report from Study
  Country: AT (occurrence: AT)
  Receive Date: 20220625
  Receipt Date: 20220811
  Transmission Date: 20221026
  Serious: Yes (Hospitalization)
  Sender: FDA-Public Use
  Company Number: AT-TEVA-2022-AT-2047992

PATIENT
  Age: 67 Year
  Sex: Female

DRUGS (1)
  1. COPAXONE [Suspect]
     Active Substance: GLATIRAMER ACETATE
     Indication: Multiple sclerosis
     Route: 065
     Dates: start: 20150601

REACTIONS (7)
  - Chills [Recovered/Resolved]
  - Tongue biting [Recovered/Resolved]
  - Fear [Recovered/Resolved]
  - Fear of injection [Not Recovered/Not Resolved]
  - Muscle spasticity [Unknown]
  - Tension [Unknown]
  - Feeling hot [Unknown]

NARRATIVE: CASE EVENT DATE: 20220101
